FAERS Safety Report 6102423-1 (Version None)
Quarter: 2009Q1

REPORT INFORMATION
  Report Type: 
  Country: None (occurrence: None)
  Receive Date: 20090304
  Receipt Date: 20090224
  Transmission Date: 20090719
  Serious: Yes (Hospitalization, Other)
  Sender: FDA-Public Use
  Company Number: US-AVENTIS-200911582US

PATIENT
  Sex: Female
  Weight: 61.3 kg

DRUGS (8)
  1. ARAVA [Suspect]
     Route: 048
     Dates: start: 20040119, end: 20050325
  2. HYDROXYCHLOROQUINE SULFATE [Suspect]
     Dates: start: 20060920, end: 20070318
  3. HYDROXYCHLOROQUINE SULFATE [Suspect]
     Dates: start: 20070319, end: 20070913
  4. PREDNISONE [Suspect]
     Dosage: DOSE: UNK
     Dates: start: 20061101
  5. SULFASALAZINE [Suspect]
     Dates: start: 20080304, end: 20080606
  6. METHYLPREDNISOLONE 4MG TAB [Suspect]
     Dosage: DOSE: UNK
     Dates: start: 20080304, end: 20080310
  7. ENBREL [Suspect]
     Route: 058
     Dates: start: 19940119, end: 20080128
  8. OMEPRAZOLE [Concomitant]
     Dosage: DOSE: UNK
     Dates: start: 20061101

REACTIONS (9)
  - APPENDICITIS PERFORATED [None]
  - CELLULITIS [None]
  - ESCHERICHIA INFECTION [None]
  - LUNG NEOPLASM [None]
  - LYMPHADENOPATHY [None]
  - OVARIAN CYST [None]
  - PNEUMONIA [None]
  - PSEUDOMONAS INFECTION [None]
  - STREPTOCOCCAL INFECTION [None]
